FAERS Safety Report 6107239-8 (Version None)
Quarter: 2009Q1

REPORT INFORMATION
  Report Type: 
  Country: None (occurrence: None)
  Receive Date: 20090305
  Receipt Date: 20090305
  Transmission Date: 20090719
  Serious: Yes (Disabling)
  Sender: FDA-Public Use
  Company Number: None

PATIENT
  Sex: Female
  Weight: 95.2554 kg

DRUGS (1)
  1. ZICAM NASAL GEL [Suspect]
     Indication: NASOPHARYNGITIS
     Dosage: 1 SPRAY/NOSTRIL EVERY 4 HRS NASAL
     Route: 045
     Dates: start: 20081101, end: 20081107

REACTIONS (2)
  - AGEUSIA [None]
  - ANOSMIA [None]
